FAERS Safety Report 7490605-6 (Version None)
Quarter: 2011Q2

REPORT INFORMATION
  Report Type: 
  Country: None (occurrence: None)
  Receive Date: 20110519
  Receipt Date: 20110509
  Transmission Date: 20111010
  Serious: Yes (Hospitalization)
  Sender: FDA-Public Use
  Company Number: US-BRISTOL-MYERS SQUIBB COMPANY-15729031

PATIENT
  Age: 68 Year
  Sex: Female

DRUGS (1)
  1. COUMADIN [Suspect]
     Dosage: 1DF-2MG OR 2.5MGS
     Dates: start: 20100701

REACTIONS (6)
  - WEIGHT DECREASED [None]
  - CONTUSION [None]
  - PRURITUS [None]
  - OEDEMA PERIPHERAL [None]
  - SKIN DISCOLOURATION [None]
  - THROMBOSIS [None]
